FAERS Safety Report 23286836 (Version 1)
Quarter: 2023Q4

REPORT INFORMATION
  Report Type: Spontaneous
  Country: CN (occurrence: None)
  Receive Date: 20231212
  Receipt Date: 20231212
  Transmission Date: 20240110
  Serious: Yes (Hospitalization)
  Sender: FDA-Public Use
  Company Number: 2023A277608

PATIENT
  Age: 25495 Day
  Sex: Male

DRUGS (7)
  1. DAPAGLIFLOZIN [Suspect]
     Active Substance: DAPAGLIFLOZIN
     Indication: Type 2 diabetes mellitus
     Route: 048
     Dates: start: 20231109, end: 20231116
  2. LIRAGLUTIDE [Suspect]
     Active Substance: LIRAGLUTIDE
     Indication: Type 2 diabetes mellitus
     Route: 058
     Dates: start: 20231109, end: 20231116
  3. INSULIN ASPART\INSULIN DEGLUDEC [Concomitant]
     Active Substance: INSULIN ASPART\INSULIN DEGLUDEC
     Indication: Type 2 diabetes mellitus
     Route: 058
     Dates: start: 20231109
  4. INSULIN ASPART\INSULIN DEGLUDEC [Concomitant]
     Active Substance: INSULIN ASPART\INSULIN DEGLUDEC
     Indication: Type 2 diabetes mellitus
     Dosage: INSULIN ASPART 4U VIA SUBCUTANEOUS INJECTION BEFORE THREE MEALS, INSULIN DEGLUDEC 12U VIA SUBCUTA...
     Route: 058
  5. SILYBIN MEGLUMINE [Concomitant]
     Indication: Liver disorder
     Route: 048
     Dates: start: 20231109, end: 20231118
  6. HERBALS\DIAMMONIUM GLYCYRRHIZINATE [Concomitant]
     Active Substance: HERBALS\DIAMMONIUM GLYCYRRHIZINATE
     Indication: Liver disorder
     Route: 048
  7. PHOSPHOLIPID [Concomitant]
     Active Substance: PHOSPHOLIPID
     Indication: Liver disorder
     Route: 048

REACTIONS (1)
  - Hepatic enzyme increased [Recovering/Resolving]

NARRATIVE: CASE EVENT DATE: 20231115
